FAERS Safety Report 5937498-3 (Version None)
Quarter: 2008Q4

REPORT INFORMATION
  Report Type: 
  Country: None (occurrence: None)
  Receive Date: 20081021
  Receipt Date: 20080320
  Transmission Date: 20090506
  Serious: Yes (Other)
  Sender: FDA-Public Use
  Company Number: HQWYE096218JUL06

PATIENT
  Age: 54 Year
  Sex: Female

DRUGS (2)
  1. PREMARIN [Suspect]
     Dosage: 1.25 MG, 48 MONTHS (4 YEARS)
     Dates: start: 19980101, end: 20020101
  2. PREMARIN [Suspect]
     Route: 067

REACTIONS (1)
  - BREAST CANCER [None]
